FAERS Safety Report 21391275 (Version 2)
Quarter: 2022Q4

REPORT INFORMATION
  Report Type: Spontaneous
  Country: AR (occurrence: AR)
  Receive Date: 20220929
  Receipt Date: 20221107
  Transmission Date: 20230113
  Serious: No
  Sender: FDA-Public Use
  Company Number: AR-PFIZER INC-PV202200062858

PATIENT
  Age: 13 Year
  Sex: Female

DRUGS (1)
  1. GENOTROPIN [Suspect]
     Active Substance: SOMATROPIN
     Dosage: 1 TO 1.4MG, 7 TIMES PER WEEK
     Dates: start: 20151014

REACTIONS (2)
  - Device mechanical issue [Unknown]
  - Injection site pain [Unknown]
